FAERS Safety Report 6596383-7 (Version None)
Quarter: 2010Q1

REPORT INFORMATION
  Report Type: 
  Country: None (occurrence: None)
  Receive Date: 20100222
  Receipt Date: 20100222
  Transmission Date: 20100710
  Serious: Yes (Life-Threatening)
  Sender: FDA-Public Use
  Company Number: None

PATIENT
  Age: 77 Year
  Sex: Male
  Weight: 83.9 kg

DRUGS (1)
  1. BOTULINUM TOXIN [Suspect]
     Indication: FACIAL SPASM
     Dosage: 3.75 U PER 0.05 ML
     Dates: start: 20091020, end: 20091020

REACTIONS (2)
  - ANGIOEDEMA [None]
  - DYSPNOEA [None]
